FAERS Safety Report 16779229 (Version 1)
Quarter: 2019Q3

REPORT INFORMATION
  Report Type: Spontaneous
  Country: SE (occurrence: SE)
  Receive Date: 20190906
  Receipt Date: 20190906
  Transmission Date: 20191005
  Serious: Yes (Other)
  Sender: FDA-Public Use
  Company Number: SE-TEVA-2019-SE-1102013

PATIENT
  Age: 67 Year
  Sex: Male

DRUGS (7)
  1. ELOCON [Concomitant]
     Active Substance: MOMETASONE FUROATE
  2. INOLAXOL [Concomitant]
     Active Substance: HERBALS\KARAYA GUM
     Dosage: 1 SACHET X 1
  3. BICALUTAMIDE. [Suspect]
     Active Substance: BICALUTAMIDE
     Indication: PROSTATE CANCER
     Route: 048
     Dates: start: 2019
  4. METOPROLOL. [Concomitant]
     Active Substance: METOPROLOL
     Dosage: 100 MG PER DAY
  5. SILDENAFIL. [Concomitant]
     Active Substance: SILDENAFIL
     Dosage: IF NECESSARY, 50 MG
  6. ELIQUIS [Concomitant]
     Active Substance: APIXABAN
     Dosage: 10 MG PER DAY
  7. ENALAPRIL [Concomitant]
     Active Substance: ENALAPRIL
     Dosage: 10 MG PER 11 DAYS

REACTIONS (2)
  - Skin ulcer [Unknown]
  - Blister [Unknown]

NARRATIVE: CASE EVENT DATE: 20190720
